FAERS Safety Report 9301140 (Version 1)
Quarter: 2013Q2

REPORT INFORMATION
  Report Type: Spontaneous
  Country: US (occurrence: US)
  Receive Date: 20130521
  Receipt Date: 20130521
  Transmission Date: 20140414
  Serious: Yes (Other)
  Sender: FDA-Public Use
  Company Number: US-BRISTOL-MYERS SQUIBB COMPANY-16875999

PATIENT
  Age: 55 Year
  Sex: Female

DRUGS (1)
  1. BARACLUDE TABS 1.0 MG [Suspect]
     Dosage: 24FEB11-12APR12
     Route: 048
     Dates: start: 20110224, end: 20120412

REACTIONS (1)
  - Virologic failure [Unknown]
